FAERS Safety Report 25944031 (Version 1)
Quarter: 2025Q4

REPORT INFORMATION
  Report Type: Spontaneous
  Country: US (occurrence: US)
  Receive Date: 20251021
  Receipt Date: 20251021
  Transmission Date: 20260119
  Serious: Yes (Life-Threatening, Hospitalization, Other)
  Sender: CIPLA
  Company Number: US-CIPLA (EU) LIMITED-2025US12817

PATIENT

DRUGS (5)
  1. LISINOPRIL [Interacting]
     Active Substance: LISINOPRIL
     Indication: Product used for unknown indication
     Dosage: 10 MILLIGRAM, QD
     Route: 065
  2. SIMVASTATIN [Interacting]
     Active Substance: SIMVASTATIN
     Indication: Lipid management
     Dosage: 20 MILLIGRAM, QD (DAILY)
     Route: 065
  3. SIMVASTATIN [Interacting]
     Active Substance: SIMVASTATIN
     Dosage: 40 MILLIGRAM, QD (INCREASE FROM 20 MG TP 40 MG DAILY)
     Route: 065
  4. SIMVASTATIN [Interacting]
     Active Substance: SIMVASTATIN
     Dosage: 60 MILLIGRAM, QD
     Route: 065
  5. SIMVASTATIN [Interacting]
     Active Substance: SIMVASTATIN
     Dosage: 20 MILLIGRAM, QD (DAILY) (LOWERED BACK)
     Route: 065

REACTIONS (5)
  - Angioedema [Recovered/Resolved]
  - Wrong dose [Unknown]
  - Accidental overdose [Unknown]
  - Drug interaction [Recovered/Resolved]
  - Drug ineffective [Unknown]
